FAERS Safety Report 4970074-8 (Version None)
Quarter: 2006Q2

REPORT INFORMATION
  Report Type: 
  Country: None (occurrence: None)
  Receive Date: 20060406
  Receipt Date: 20060322
  Transmission Date: 20061013
  Serious: Yes (Disabling, Other)
  Sender: FDA-Public Use
  Company Number: TRP_0735_2006

PATIENT
  Age: 42 Year
  Sex: Male

DRUGS (10)
  1. RIBASPHERE [Suspect]
     Indication: HEPATITIS C
     Dosage: DF PO
     Route: 048
     Dates: start: 20051209
  2. PEG-INTRON [Suspect]
     Indication: HEPATITIS C
     Dosage: DF SC
     Route: 058
     Dates: start: 20051209
  3. CARTIA XT [Concomitant]
  4. CILOSTAZOL [Concomitant]
  5. HYDROCODONE [Concomitant]
  6. IBUPROFEN [Concomitant]
  7. LASIX [Concomitant]
  8. POTASSIUM CHLORIDE EXTENDED RELEASE [Concomitant]
  9. PREVACID [Concomitant]
  10. HYDROCODONE TABLETS [Concomitant]

REACTIONS (19)
  - AGITATION [None]
  - ANGER [None]
  - ARTHRALGIA [None]
  - BACK PAIN [None]
  - CHILLS [None]
  - DEHYDRATION [None]
  - DIARRHOEA [None]
  - DIFFICULTY IN WALKING [None]
  - FATIGUE [None]
  - HALLUCINATION, AUDITORY [None]
  - HEADACHE [None]
  - HEPATIC PAIN [None]
  - IMPAIRED WORK ABILITY [None]
  - INJECTION SITE PRURITUS [None]
  - INJECTION SITE RASH [None]
  - MUSCLE ATROPHY [None]
  - MUSCLE SPASMS [None]
  - NECK PAIN [None]
  - SHOULDER PAIN [None]
